FAERS Safety Report 7364369-0 (Version None)
Quarter: 2011Q1

REPORT INFORMATION
  Report Type: 
  Country: None (occurrence: None)
  Receive Date: 20110321
  Receipt Date: 20110218
  Transmission Date: 20110831
  Serious: No
  Sender: FDA-Public Use
  Company Number: US-ALLERGAN-1102429US

PATIENT
  Age: 21 Year
  Sex: Male

DRUGS (1)
  1. ZYMAXID [Suspect]
     Indication: ULCERATIVE KERATITIS
     Dosage: 1 GTT, Q1HR
     Route: 047
     Dates: start: 20110101

REACTIONS (2)
  - CORNEAL OEDEMA [None]
  - EYELID OEDEMA [None]
